FAERS Safety Report 7293399-2 (Version None)
Quarter: 2011Q1

REPORT INFORMATION
  Report Type: 
  Country: None (occurrence: None)
  Receive Date: 20110215
  Receipt Date: 20110204
  Transmission Date: 20110831
  Serious: Yes (Other)
  Sender: FDA-Public Use
  Company Number: GB-WATSON-2011-01564

PATIENT
  Age: 75 Year
  Sex: Male

DRUGS (1)
  1. QUININE SULFATE [Suspect]
     Indication: MUSCLE SPASMS
     Dosage: 300 MG, DAILY
     Route: 048

REACTIONS (3)
  - EYE HAEMORRHAGE [None]
  - COAGULOPATHY [None]
  - THROMBOCYTOPENIA [None]
